FAERS Safety Report 19925234 (Version 1)
Quarter: 2021Q4

REPORT INFORMATION
  Report Type: Spontaneous
  Country: AT (occurrence: AT)
  Receive Date: 20211006
  Receipt Date: 20211006
  Transmission Date: 20220303
  Serious: Yes (Death, Hospitalization)
  Sender: FDA-Public Use
  Company Number: 2021A633186

PATIENT
  Sex: Male

DRUGS (21)
  1. CALQUENCE [Suspect]
     Active Substance: ACALABRUTINIB
     Dosage: UNKNOWN DOSE AND FREQUENCY
     Route: 048
  2. BENDAMUSTINE/RITUXIMAB [Concomitant]
     Dosage: 6 CYCLES
     Dates: start: 20201002
  3. IBRUTINIB [Concomitant]
     Active Substance: IBRUTINIB
  4. VENETOCLAX [Concomitant]
     Active Substance: VENETOCLAX
  5. IMATINIB. [Concomitant]
     Active Substance: IMATINIB MESYLATE
     Indication: Chronic myeloid leukaemia
  6. PENICILIN [Concomitant]
  7. MODERNA COVID-19 VACCINE [Concomitant]
     Active Substance: CX-024414
     Dates: start: 20210602
  8. DIPYRONE [Concomitant]
     Active Substance: DIPYRONE
     Dosage: 30 GTT IN CASE OF PAIN/FEVER, MAX 4X DAILY
  9. POLYETHYLENE GLYCOL 3350\POTASSIUM CHLORIDE\SODIUM BICARBONATE\SODIUM [Concomitant]
     Active Substance: POLYETHYLENE GLYCOL 3350\POTASSIUM CHLORIDE\SODIUM BICARBONATE\SODIUM CHLORIDE
     Dosage: IN CASE OF OBSTIPATION 1 SACHET DAILY
  10. GASTROZOL [Concomitant]
  11. LEVOTHYROXINE SODIUM [Concomitant]
     Active Substance: LEVOTHYROXINE SODIUM
  12. VALACICLOVIR ARC [Concomitant]
  13. EZETIMIB ACC [Concomitant]
  14. RASAGILIN 1A [Concomitant]
  15. PRAMIPEXOLE [Concomitant]
     Active Substance: PRAMIPEXOLE
     Dosage: 1/2 EVENING
  16. BENSERAZIDE HYDROCHLORIDE\LEVODOPA [Concomitant]
     Active Substance: BENSERAZIDE HYDROCHLORIDE\LEVODOPA
     Dosage: 100/25MG ONE AT NIGHT
  17. DUTAGLANDIN WKPS [Concomitant]
  18. TRIGELAN [Concomitant]
     Dosage: 200/50/200MG, SIX TIMES DAILY HALF A TABLET
  19. OLEOVIT D3 TR [Concomitant]
     Dosage: 30 GTT ONE TIME WEEKLY ON WEDNESDAY
  20. DEXPANTHENOL [Concomitant]
     Active Substance: DEXPANTHENOL
     Dosage: USE THREE TIMES DAILY UNDILUTED, DO NOT SWALLOW
  21. ZOLPIDEM [Concomitant]
     Active Substance: ZOLPIDEM TARTRATE
     Dosage: IN CASE OF ESST ONE TABLET

REACTIONS (3)
  - Urethral obstruction [Unknown]
  - General physical health deterioration [Unknown]
  - Off label use [Unknown]
